FAERS Safety Report 5099847-0 (Version None)
Quarter: 2006Q3

REPORT INFORMATION
  Report Type: 
  Country: None (occurrence: None)
  Receive Date: 20060906
  Receipt Date: 20060906
  Transmission Date: 20061208
  Serious: Yes (Life-Threatening, Hospitalization)
  Sender: FDA-Public Use
  Company Number: None

PATIENT
  Age: 80 Year
  Sex: Female
  Weight: 54.8 kg

DRUGS (2)
  1. LANOXIN [Suspect]
     Indication: ATRIAL FIBRILLATION
     Dosage: 0.25 MG  DAILY  ORALLY  (DATES OF USE: HOME MEDICATION)
     Route: 048
  2. CARDIZEM [Suspect]
     Dosage: 120 MG  UNKNOWN   ORALLY (DATES OF USE:  HOME MEDICATION)
     Route: 048

REACTIONS (3)
  - BRADYCARDIA [None]
  - CARDIOACTIVE DRUG LEVEL INCREASED [None]
  - DIZZINESS [None]
